FAERS Safety Report 19298490 (Version 1)
Quarter: 2021Q2

REPORT INFORMATION
  Report Type: Spontaneous
  Country: US (occurrence: US)
  Receive Date: 20210525
  Receipt Date: 20210525
  Transmission Date: 20210717
  Serious: No
  Sender: FDA-Public Use
  Company Number: US-MICRO LABS LIMITED-ML2021-01017

PATIENT
  Sex: Female

DRUGS (2)
  1. DORZOLAMIDE/TIMOLOL [Suspect]
     Active Substance: DORZOLAMIDE\TIMOLOL
     Indication: CATARACT
  2. DORZOLAMIDE/TIMOLOL [Suspect]
     Active Substance: DORZOLAMIDE\TIMOLOL
     Indication: GLAUCOMA
     Dosage: 22.3 MG / 6.8 MG PER ML; ONE DROP TWICE A DAY IN LEFT EYE
     Route: 047

REACTIONS (2)
  - Vertigo [Not Recovered/Not Resolved]
  - Dizziness [Not Recovered/Not Resolved]
